FAERS Safety Report 11774136 (Version 3)
Quarter: 2016Q2

REPORT INFORMATION
  Report Type: Spontaneous
  Country: DZ (occurrence: DZ)
  Receive Date: 20151124
  Receipt Date: 20160429
  Transmission Date: 20160815
  Serious: Yes (Hospitalization, Other)
  Sender: FDA-Public Use
  Company Number: DZ-TAKEDA-2015MPI007882

PATIENT
  Age: 68 Year
  Sex: Female
  Weight: 73 kg

DRUGS (3)
  1. OMEPRAZOLE. [Concomitant]
     Active Substance: OMEPRAZOLE
     Indication: GASTROINTESTINAL DISORDER THERAPY
     Dosage: UNK
     Route: 048
  2. VELCADE [Suspect]
     Active Substance: BORTEZOMIB
     Indication: PLASMA CELL MYELOMA
     Dosage: 1.3 MG/M2, UNK
     Route: 058
     Dates: start: 20151026, end: 20151108
  3. DEXAMETHASONE. [Concomitant]
     Active Substance: DEXAMETHASONE
     Indication: CHEMOTHERAPY
     Dosage: 40 MG, UNK
     Route: 042
     Dates: start: 20151026, end: 20151106

REACTIONS (11)
  - Pneumobilia [Unknown]
  - Application site erythema [Unknown]
  - Gastrointestinal toxicity [Unknown]
  - Eye pain [Unknown]
  - Lymphocyte count decreased [Unknown]
  - Acute abdomen [Recovered/Resolved]
  - Mucosal inflammation [Unknown]
  - Herpes zoster [Recovered/Resolved]
  - Leukopenia [Unknown]
  - Paraesthesia [Not Recovered/Not Resolved]
  - Thrombocytopenia [Unknown]

NARRATIVE: CASE EVENT DATE: 201511
